FAERS Safety Report 9620915 (Version 1)
Quarter: 2013Q4

REPORT INFORMATION
  Report Type: Report from Study
  Country: AU (occurrence: AU)
  Receive Date: 20131015
  Receipt Date: 20131015
  Transmission Date: 20140711
  Serious: Yes (Hospitalization)
  Sender: FDA-Public Use
  Company Number: AU-ROCHE-1285519

PATIENT
  Age: 66 Year
  Sex: Female
  Weight: 73.3 kg

DRUGS (8)
  1. TACROLIMUS [Suspect]
     Indication: PROPHYLAXIS AGAINST TRANSPLANT REJECTION
     Route: 048
     Dates: start: 20090625
  2. TACROLIMUS [Suspect]
     Route: 048
     Dates: start: 20090625
  3. PREDNISOLONE SODIUM SUCCINATE [Suspect]
     Indication: PROPHYLAXIS AGAINST TRANSPLANT REJECTION
     Route: 048
     Dates: start: 20090627
  4. MYCOPHENOLATE MOFETIL [Suspect]
     Indication: PROPHYLAXIS AGAINST TRANSPLANT REJECTION
     Route: 048
     Dates: start: 20090625
  5. METOPROLOL AL [Concomitant]
     Route: 065
     Dates: start: 20090805
  6. RANITIDINE [Concomitant]
     Route: 065
     Dates: start: 20090626
  7. SIMVASTATIN [Concomitant]
     Route: 065
  8. SEPTRIN FORTE [Concomitant]
     Route: 065
     Dates: start: 20090628

REACTIONS (1)
  - Transplant rejection [Recovered/Resolved]
